FAERS Safety Report 25995857 (Version 1)
Quarter: 2025Q4

REPORT INFORMATION
  Report Type: Spontaneous
  Country: US (occurrence: None)
  Receive Date: 20251104
  Receipt Date: 20251104
  Transmission Date: 20260118
  Serious: Yes (Life-Threatening, Hospitalization)
  Sender: FDA-CTU
  Company Number: None

PATIENT
  Age: 51 Year
  Sex: Female
  Weight: 63 kg

DRUGS (3)
  1. ZEPBOUND [Suspect]
     Active Substance: TIRZEPATIDE
     Indication: Menopause
     Dates: start: 20250602, end: 20250828
  2. ZEPBOUND [Suspect]
     Active Substance: TIRZEPATIDE
     Indication: Weight increased
  3. Zoloft 50md Q day [Concomitant]

REACTIONS (4)
  - Appendicitis [None]
  - Appendicitis perforated [None]
  - Abdominal abscess [None]
  - Sepsis [None]

NARRATIVE: CASE EVENT DATE: 20250906
